FAERS Safety Report 7046942-2 (Version None)
Quarter: 2010Q4

REPORT INFORMATION
  Report Type: 
  Country: None (occurrence: None)
  Receive Date: 20101015
  Receipt Date: 20101013
  Transmission Date: 20110411
  Serious: Yes (Other)
  Sender: FDA-Public Use
  Company Number: AR-BRISTOL-MYERS SQUIBB COMPANY-15332570

PATIENT
  Age: 33 Year
  Sex: Female

DRUGS (1)
  1. ORENCIA [Suspect]
     Dosage: 2 INF:DAYS 0 AND 14

REACTIONS (2)
  - BRONCHOSPASM [None]
  - RHINITIS [None]
